FAERS Safety Report 9863118 (Version 2)
Quarter: 2014Q1

REPORT INFORMATION
  Report Type: Report from Study
  Country: ES (occurrence: ES)
  Receive Date: 20140203
  Receipt Date: 20140214
  Transmission Date: 20141002
  Serious: Yes (Other)
  Sender: FDA-Public Use
  Company Number: ES-CELGENEUS-144-21880-14013656

PATIENT
  Age: 79 Year
  Sex: Female
  Weight: 83 kg

DRUGS (5)
  1. REVLIMID [Suspect]
     Indication: PLASMA CELL MYELOMA
     Route: 048
     Dates: start: 20130927, end: 20140102
  2. VELCADE [Suspect]
     Indication: PLASMA CELL MYELOMA
     Route: 041
     Dates: start: 20120926, end: 20130816
  3. DEXAMETHASONE [Suspect]
     Indication: PLASMA CELL MYELOMA
     Route: 048
     Dates: start: 20120927, end: 20140102
  4. PREDNISONE [Suspect]
     Indication: PLASMA CELL MYELOMA
     Route: 048
     Dates: start: 20120928, end: 20130819
  5. MELPHALAN [Suspect]
     Indication: PLASMA CELL MYELOMA
     Route: 048
     Dates: start: 20120928, end: 20130819

REACTIONS (1)
  - Refractory anaemia with an excess of blasts [Not Recovered/Not Resolved]
